FAERS Safety Report 6672050-6 (Version None)
Quarter: 2010Q2

REPORT INFORMATION
  Report Type: 
  Country: None (occurrence: None)
  Receive Date: 20100406
  Receipt Date: 20100325
  Transmission Date: 20101027
  Serious: Yes (Hospitalization, Disabling)
  Sender: FDA-Public Use
  Company Number: 004446

PATIENT
  Sex: Male
  Weight: 73.3 kg

DRUGS (22)
  1. LEVETIRACETAM [Suspect]
     Indication: CONVULSION
     Dosage: SEE IMAGE
     Route: 048
     Dates: end: 20060703
  2. LEVETIRACETAM [Suspect]
     Indication: CONVULSION
     Dosage: SEE IMAGE
     Route: 048
     Dates: start: 20060704, end: 20060704
  3. LEVETIRACETAM [Suspect]
     Indication: CONVULSION
     Dosage: SEE IMAGE
     Route: 048
     Dates: start: 20060705, end: 20060925
  4. LEVETIRACETAM [Suspect]
     Indication: CONVULSION
     Dosage: SEE IMAGE
     Route: 048
     Dates: start: 20060926, end: 20060926
  5. LEVETIRACETAM [Suspect]
     Indication: CONVULSION
     Dosage: SEE IMAGE
     Route: 048
     Dates: start: 20060927, end: 20061023
  6. LEVETIRACETAM [Suspect]
     Indication: CONVULSION
     Dosage: SEE IMAGE
     Route: 048
     Dates: start: 20061024, end: 20061024
  7. LEVETIRACETAM [Suspect]
     Indication: CONVULSION
     Dosage: SEE IMAGE
     Route: 048
     Dates: start: 20061025, end: 20070115
  8. LEVETIRACETAM [Suspect]
     Indication: CONVULSION
     Dosage: SEE IMAGE
     Route: 048
     Dates: start: 20070116, end: 20070116
  9. LEVETIRACETAM [Suspect]
     Indication: CONVULSION
     Dosage: SEE IMAGE
     Route: 048
     Dates: start: 20070117, end: 20070212
  10. LEVETIRACETAM [Suspect]
     Indication: CONVULSION
     Dosage: SEE IMAGE
     Route: 048
     Dates: start: 20070213, end: 20070213
  11. LEVETIRACETAM [Suspect]
     Indication: CONVULSION
     Dosage: SEE IMAGE
     Route: 048
     Dates: start: 20070214, end: 20070226
  12. LEVETIRACETAM [Suspect]
     Indication: CONVULSION
     Dosage: SEE IMAGE
     Route: 048
     Dates: start: 20070227, end: 20070227
  13. LEVETIRACETAM [Suspect]
     Indication: CONVULSION
     Dosage: SEE IMAGE
     Route: 048
     Dates: start: 20070228, end: 20070409
  14. LEVETIRACETAM [Suspect]
     Indication: CONVULSION
     Dosage: SEE IMAGE
     Route: 048
     Dates: start: 20070410, end: 20070410
  15. LEVETIRACETAM [Suspect]
     Indication: CONVULSION
     Dosage: SEE IMAGE
     Route: 048
     Dates: start: 20070411, end: 20070604
  16. LEVETIRACETAM [Suspect]
     Indication: CONVULSION
     Dosage: SEE IMAGE
     Route: 048
     Dates: start: 20070605, end: 20070605
  17. LEVETIRACETAM [Suspect]
     Indication: CONVULSION
     Dosage: SEE IMAGE
     Route: 048
     Dates: start: 20070606, end: 20070606
  18. LEVETIRACETAM [Suspect]
     Indication: CONVULSION
     Dosage: SEE IMAGE
     Route: 048
     Dates: start: 20070606, end: 20080730
  19. LEVETIRACETAM [Suspect]
     Indication: CONVULSION
     Dosage: SEE IMAGE
     Route: 048
     Dates: start: 20080731, end: 20100111
  20. CARBAMAZEPINE [Concomitant]
  21. KETOPROFEN [Concomitant]
  22. DICLOFENAC SODIUM [Concomitant]

REACTIONS (3)
  - CAROTID ARTERY STENOSIS [None]
  - CEREBRAL INFARCTION [None]
  - FALL [None]
